FAERS Safety Report 19361911 (Version 2)
Quarter: 2021Q2

REPORT INFORMATION
  Report Type: Spontaneous
  Country: IN (occurrence: IN)
  Receive Date: 20210601
  Receipt Date: 20210610
  Transmission Date: 20210717
  Serious: Yes (Other)
  Sender: FDA-Public Use
  Company Number: IN-PFIZER INC-2021259990

PATIENT
  Age: 52 Year
  Sex: Female

DRUGS (2)
  1. LORBRIQUA [Suspect]
     Active Substance: LORLATINIB
     Dosage: 100 MG, DAILY (25 MG, 4 TABLETS, DAILY)
     Route: 048
     Dates: start: 20210308
  2. LORBRIQUA [Suspect]
     Active Substance: LORLATINIB
     Dosage: 75 MG, DAILY (X 6 MONTHS)
     Route: 048
     Dates: start: 20210510

REACTIONS (2)
  - Delusion [Recovered/Resolved]
  - Hallucination [Recovered/Resolved]
